FAERS Safety Report 23996486 (Version 2)
Quarter: 2024Q3

REPORT INFORMATION
  Report Type: Spontaneous
  Country: US (occurrence: US)
  Receive Date: 20240620
  Receipt Date: 20240716
  Transmission Date: 20241017
  Serious: No
  Sender: MYLAN
  Company Number: US-MYLANLABS-2024M1052003

PATIENT
  Age: 85 Year
  Sex: Female
  Weight: 32.2 kg

DRUGS (1)
  1. WIXELA INHUB [Suspect]
     Active Substance: FLUTICASONE PROPIONATE\SALMETEROL XINAFOATE
     Indication: Chronic obstructive pulmonary disease
     Dosage: 500/50 MICROGRAM, BID(TWICE A DAY, 1 PUFF IN AM, 1 PUFF IN PM)
     Route: 055

REACTIONS (3)
  - Device dispensing error [Unknown]
  - Device issue [Unknown]
  - Device malfunction [Unknown]

NARRATIVE: CASE EVENT DATE: 20240501
